FAERS Safety Report 24989570 (Version 1)
Quarter: 2025Q1

REPORT INFORMATION
  Report Type: Spontaneous
  Country: CN (occurrence: CN)
  Receive Date: 20250220
  Receipt Date: 20250220
  Transmission Date: 20250408
  Serious: Yes (Hospitalization, Other)
  Sender: Kenvue
  Company Number: CN-KENVUE-20250202436

PATIENT

DRUGS (2)
  1. IBUPROFEN [Suspect]
     Active Substance: IBUPROFEN
     Indication: Product used for unknown indication
     Dosage: 600 MILLIGRAM, ONCE A DAY, FOR THREE CONSECUTIVE DAYS
     Route: 065
  2. IBUPROFEN [Suspect]
     Active Substance: IBUPROFEN
     Route: 065

REACTIONS (5)
  - Abdominal discomfort [Recovered/Resolved]
  - Product administered to patient of inappropriate age [Unknown]
  - Acute kidney injury [Recovered/Resolved]
  - Dyspepsia [Recovered/Resolved]
  - Overdose [Unknown]
